FAERS Safety Report 9670353 (Version 2)
Quarter: 2013Q4

REPORT INFORMATION
  Report Type: Spontaneous
  Country: DE (occurrence: DE)
  Receive Date: 20131105
  Receipt Date: 20131114
  Transmission Date: 20140711
  Serious: Yes (Other)
  Sender: FDA-Public Use
  Company Number: DE-IPSEN BIOPHARMACEUTICALS, INC.-2013-4755

PATIENT
  Age: 9 Year
  Sex: Female
  Weight: 17 kg

DRUGS (3)
  1. DYSPORT [Suspect]
     Indication: MUSCLE SPASTICITY
     Dosage: 1500 UNITS
     Route: 030
     Dates: start: 20130311, end: 20130311
  2. MIDAZOLAM [Concomitant]
     Indication: SEDATION
     Dosage: 0.3 MG/ KG (5.1 MG)
     Route: 054
     Dates: start: 20130311, end: 20130311
  3. DOLANTIN [Concomitant]
     Indication: ANALGESIC THERAPY
     Dosage: 1 MG/ KG (17 MG)
     Route: 054
     Dates: start: 20130311, end: 20130311

REACTIONS (2)
  - Neuromuscular toxicity [Recovered/Resolved]
  - Overdose [Unknown]
